FAERS Safety Report 11253480 (Version 6)
Quarter: 2019Q3

REPORT INFORMATION
  Report Type: Report from Study
  Country: CA (occurrence: CA)
  Receive Date: 20150709
  Receipt Date: 20190726
  Transmission Date: 20191004
  Serious: Yes (Hospitalization)
  Sender: FDA-Public Use
  Company Number: CA-PFIZER INC-2015196360

PATIENT
  Age: 86 Year
  Sex: Female
  Weight: 66 kg

DRUGS (16)
  1. PREGABALIN. [Concomitant]
     Active Substance: PREGABALIN
     Indication: PAIN IN EXTREMITY
     Dosage: 25 MG, DAILY
     Route: 048
     Dates: start: 20120321
  2. VITAMIN B12 [Concomitant]
     Active Substance: CYANOCOBALAMIN
     Indication: VITAMIN B12 DEFICIENCY
     Dosage: 1200 ?G, DAILY
     Route: 048
     Dates: start: 20120731
  3. DONEPEZIL. [Concomitant]
     Active Substance: DONEPEZIL
     Indication: DEMENTIA ALZHEIMER^S TYPE
     Dosage: 5 MG, DAILY
     Route: 048
     Dates: start: 20140317
  4. PF-05212377 [Suspect]
     Active Substance: INVESTIGATIONAL PRODUCT
     Indication: DEMENTIA ALZHEIMER^S TYPE
     Dosage: 30 MG, 1X/DAY
     Route: 048
     Dates: start: 20150318, end: 20150604
  5. AMLODIPINE BESILATE [Suspect]
     Active Substance: AMLODIPINE BESYLATE
     Indication: HYPERTENSION
     Dosage: 10 MG, DAILY
     Route: 048
     Dates: start: 20070225, end: 201506
  6. IRBESARTAN. [Concomitant]
     Active Substance: IRBESARTAN
     Indication: HYPERTENSION
     Dosage: 300 MG, DAILY
     Route: 048
     Dates: start: 20060915
  7. DOMPERIDONE [Concomitant]
     Active Substance: DOMPERIDONE
     Indication: IRRITABLE BOWEL SYNDROME
     Dosage: 5 MG, 4X/DAY
     Route: 048
     Dates: start: 20051118
  8. JAMP-CALCIUM [Concomitant]
     Indication: SUPPLEMENTATION THERAPY
     Dosage: 500 MG, DAILY
     Route: 048
     Dates: start: 20110621
  9. DOCUSATE [Concomitant]
     Active Substance: DOCUSATE
     Indication: CONSTIPATION
     Dosage: 200 MG, 2X/DAY
     Route: 048
     Dates: start: 20120625
  10. EURO-D [Concomitant]
     Indication: SUPPLEMENTATION THERAPY
     Dosage: 400 IU, 2X/DAY
     Route: 048
     Dates: start: 20120625
  11. AMLODIPINE BESILATE [Suspect]
     Active Substance: AMLODIPINE BESYLATE
     Dosage: 2.5 MG, DAILY
     Route: 048
     Dates: start: 201506
  12. METOPROLOL. [Suspect]
     Active Substance: METOPROLOL
     Indication: HYPERTENSION
     Dosage: 25 MG, 2X/DAY
     Route: 048
     Dates: start: 20090730, end: 201506
  13. ASAPHEN [Concomitant]
     Active Substance: ASPIRIN
     Indication: CARDIOVASCULAR EVENT PROPHYLAXIS
     Dosage: 80 MG, DAILY
     Route: 048
     Dates: start: 20021030
  14. CITALOPRAM [Concomitant]
     Active Substance: CITALOPRAM HYDROBROMIDE
     Indication: PROPHYLAXIS
     Dosage: 20 MG, DAILY
     Route: 048
     Dates: start: 2000
  15. PREGABALIN. [Concomitant]
     Active Substance: PREGABALIN
     Dosage: 75 MG, DAILY
     Route: 048
     Dates: start: 20120327
  16. PANTOPRAZOLE [Concomitant]
     Active Substance: PANTOPRAZOLE
     Indication: GASTROOESOPHAGEAL REFLUX DISEASE
     Dosage: 40 MG, DAILY
     Route: 048
     Dates: start: 20111114

REACTIONS (3)
  - Orthostatic hypotension [Recovered/Resolved]
  - Asthenia [Recovered/Resolved]
  - Bradycardia [Recovered/Resolved]

NARRATIVE: CASE EVENT DATE: 20150604
